FAERS Safety Report 8074313-9 (Version None)
Quarter: 2011Q4

REPORT INFORMATION
  Report Type: 
  Country: None (occurrence: None)
  Receive Date: 20111221
  Receipt Date: 20110503
  Transmission Date: 20120403
  Serious: Yes (Hospitalization, Other)
  Sender: FDA-Public Use
  Company Number: PHHY2011US30687

PATIENT
  Age: 65 Year
  Sex: Male

DRUGS (2)
  1. EXJADE [Suspect]
     Indication: IRON OVERLOAD
     Dosage: 500 MG, QD, ORAL
     Route: 048
     Dates: start: 20110222
  2. EXJADE [Suspect]
     Indication: ANAEMIA
     Dosage: 500 MG, QD, ORAL
     Route: 048
     Dates: start: 20110222

REACTIONS (6)
  - VOMITING [None]
  - FEELING ABNORMAL [None]
  - OEDEMA PERIPHERAL [None]
  - DIARRHOEA [None]
  - TINNITUS [None]
  - JOINT SWELLING [None]
